FAERS Safety Report 17306914 (Version 4)
Quarter: 2021Q3

REPORT INFORMATION
  Report Type: Other
  Country: CA (occurrence: CA)
  Receive Date: 20200123
  Receipt Date: 20210818
  Transmission Date: 20211014
  Serious: Yes (Other)
  Sender: FDA-Public Use
  Company Number: CA-GLENMARK PHARMACEUTICALS-2020GMK045467

PATIENT

DRUGS (3)
  1. OCALIVA [Suspect]
     Active Substance: OBETICHOLIC ACID
     Indication: PRIMARY BILIARY CHOLANGITIS
     Dosage: 5 MILLIGRAM, OD
     Route: 048
  2. URSODEOXYCHOLIC ACID [Suspect]
     Active Substance: URSODIOL
     Indication: PRODUCT USED FOR UNKNOWN INDICATION
     Dosage: 500 MILLIGRAM, UNK
     Route: 065
  3. URSODEOXYCHOLIC ACID [Suspect]
     Active Substance: URSODIOL
     Dosage: 1000 MILLIGRAM, UNK
     Route: 065

REACTIONS (9)
  - Hepatic fibrosis [Unknown]
  - Blood bilirubin decreased [Unknown]
  - Blood albumin decreased [Unknown]
  - Aspartate aminotransferase increased [Unknown]
  - Abdominal discomfort [Unknown]
  - Fatigue [Unknown]
  - Blood alkaline phosphatase decreased [Unknown]
  - Feeling abnormal [Unknown]
  - Muscle atrophy [Unknown]
